FAERS Safety Report 25302493 (Version 6)
Quarter: 2025Q2

REPORT INFORMATION
  Report Type: Spontaneous
  Country: MX (occurrence: MX)
  Receive Date: 20250512
  Receipt Date: 20250610
  Transmission Date: 20250717
  Serious: Yes (Life-Threatening, Hospitalization, Other)
  Sender: EMD SERONO INC
  Company Number: MX-Merck Healthcare KGaA-2025022470

PATIENT
  Age: 37 Year
  Sex: Female

DRUGS (4)
  1. CLADRIBINE [Suspect]
     Active Substance: CLADRIBINE
     Indication: Multiple sclerosis
  2. CLADRIBINE [Suspect]
     Active Substance: CLADRIBINE
  3. NATALIZUMAB [Suspect]
     Active Substance: NATALIZUMAB
     Indication: Multiple sclerosis
     Dates: start: 2015, end: 202306
  4. NATALIZUMAB [Suspect]
     Active Substance: NATALIZUMAB
     Dates: start: 202401, end: 202410

REACTIONS (7)
  - Pneumonia [Recovered/Resolved]
  - Autonomic nervous system imbalance [Recovered/Resolved]
  - Lymphocyte count decreased [Not Recovered/Not Resolved]
  - Encephalopathy [Recovered/Resolved]
  - Multiple sclerosis [Unknown]
  - Multiple sclerosis relapse [Unknown]
  - CSF protein increased [Unknown]

NARRATIVE: CASE EVENT DATE: 20250401
